FAERS Safety Report 6027800-9 (Version None)
Quarter: 2009Q1

REPORT INFORMATION
  Report Type: 
  Country: None (occurrence: None)
  Receive Date: 20090105
  Receipt Date: 20081212
  Transmission Date: 20090719
  Serious: No
  Sender: FDA-Public Use
  Company Number: US-B.I. PHARMACEUTICALS,INC./RIDGEFIELD-2008-BP-18674BP

PATIENT
  Age: 42 Year
  Sex: Male

DRUGS (3)
  1. ZANTAC 150 [Suspect]
     Route: 048
  2. MAALOX ANTACID/ANTIGAS MAX LIQ [Suspect]
     Indication: DYSPEPSIA
     Route: 048
  3. GAS-X EXTSTR CHEWABLE CHERRY CREME [Suspect]
     Indication: FLATULENCE
     Route: 048

REACTIONS (1)
  - DIARRHOEA [None]
